FAERS Safety Report 4943575-6 (Version None)
Quarter: 2006Q1

REPORT INFORMATION
  Report Type: 
  Country: None (occurrence: None)
  Receive Date: 20060310
  Receipt Date: 20060223
  Transmission Date: 20060701
  Serious: Yes (Hospitalization)
  Sender: FDA-Public Use
  Company Number: B0406345A

PATIENT
  Age: 1 Year
  Sex: Female
  Weight: 1.9958 kg

DRUGS (1)
  1. PAXIL [Suspect]
     Dosage: PER DAY/ TRANSPLACENTARY
     Route: 064
     Dates: start: 20051227, end: 20060106

REACTIONS (14)
  - APGAR SCORE LOW [None]
  - CAESAREAN SECTION [None]
  - DRUG EXPOSURE DURING PREGNANCY [None]
  - DRUG WITHDRAWAL SYNDROME [None]
  - HYPOTONIA NEONATAL [None]
  - IRRITABILITY [None]
  - NEONATAL ASPHYXIA [None]
  - NEONATAL DISORDER [None]
  - PREMATURE BABY [None]
  - RESPIRATORY DISORDER NEONATAL [None]
  - SLEEP DISORDER [None]
  - SOMNOLENCE NEONATAL [None]
  - TRANSIENT TACHYPNOEA OF THE NEWBORN [None]
  - TREMOR [None]
